FAERS Safety Report 7957000-4 (Version None)
Quarter: 2011Q4

REPORT INFORMATION
  Report Type: 
  Country: None (occurrence: None)
  Receive Date: 20111205
  Receipt Date: 20111205
  Transmission Date: 20120403
  Serious: Yes (Life-Threatening, Hospitalization)
  Sender: FDA-Public Use
  Company Number: None

PATIENT
  Age: 64 Year
  Sex: Female
  Weight: 70.306 kg

DRUGS (1)
  1. SULFASALAZINE [Suspect]
     Indication: OEDEMA PERIPHERAL
     Dosage: 500MG FOR FIRST 2 WEEKS
     Route: 048
     Dates: start: 20110903, end: 20110922

REACTIONS (10)
  - HYPERTENSION [None]
  - DYSPEPSIA [None]
  - SWELLING FACE [None]
  - SKIN EXFOLIATION [None]
  - STEVENS-JOHNSON SYNDROME [None]
  - PYREXIA [None]
  - ASTHENIA [None]
  - ORAL CANDIDIASIS [None]
  - HEART RATE INCREASED [None]
  - SKIN NECROSIS [None]
